FAERS Safety Report 10201467 (Version 1)
Quarter: 2014Q2

REPORT INFORMATION
  Report Type: Report from Study
  Country: US (occurrence: US)
  Receive Date: 20140528
  Receipt Date: 20140528
  Transmission Date: 20141212
  Serious: Yes (Other)
  Sender: FDA-Public Use
  Company Number: US-ASTELLAS-2014US005899

PATIENT
  Sex: 0

DRUGS (3)
  1. ERLOTINIB [Suspect]
     Indication: PANCREATIC CARCINOMA
     Route: 065
  2. DALOTUZUMAB [Suspect]
     Indication: PANCREATIC CARCINOMA
     Dosage: 5 OR 10 MG/KG, WEEKLY X 4, OVER 60 MIN, ONCE WEEKLY
     Route: 065
  3. GEMCITABINE [Suspect]
     Indication: PANCREATIC CARCINOMA
     Dosage: 1000 MG/M2, ONCE WEEKLY, OVER 100 MIN, 3 WEEKS
     Route: 065

REACTIONS (6)
  - Neutropenia [Unknown]
  - Thrombocytopenia [Unknown]
  - Hyperglycaemia [Unknown]
  - Febrile neutropenia [Unknown]
  - Transaminases increased [Unknown]
  - Fatigue [Unknown]
